FAERS Safety Report 11927950 (Version 2)
Quarter: 2016Q1

REPORT INFORMATION
  Report Type: Spontaneous
  Country: SI (occurrence: SI)
  Receive Date: 20160119
  Receipt Date: 20160229
  Transmission Date: 20160526
  Serious: Yes (Other)
  Sender: FDA-Public Use
  Company Number: SI-BAYER-2015-245258

PATIENT
  Age: 20 Year
  Sex: Female
  Weight: 51 kg

DRUGS (1)
  1. JAYDESS [Suspect]
     Active Substance: LEVONORGESTREL
     Indication: CONTRACEPTION
     Dosage: 14 MCG/24HR, CONT
     Route: 015
     Dates: start: 20140922, end: 20151107

REACTIONS (5)
  - Retained products of conception [Recovered/Resolved]
  - Pregnancy with contraceptive device [Recovered/Resolved]
  - Postpartum haemorrhage [Recovered/Resolved]
  - Foetal malpresentation [Recovered/Resolved]
  - Drug ineffective [None]

NARRATIVE: CASE EVENT DATE: 2015
